FAERS Safety Report 10614311 (Version 2)
Quarter: 2015Q1

REPORT INFORMATION
  Report Type: Report from Study
  Country: US (occurrence: US)
  Receive Date: 20141128
  Receipt Date: 20150206
  Transmission Date: 20150720
  Serious: Yes (Hospitalization, Other)
  Sender: FDA-Public Use
  Company Number: PHEH2014US023080

PATIENT
  Sex: Male
  Weight: 92.73 kg

DRUGS (1)
  1. EXJADE [Suspect]
     Active Substance: DEFERASIROX
     Indication: MYELODYSPLASTIC SYNDROME
     Route: 065

REACTIONS (4)
  - Disease progression [Unknown]
  - Blood glucose increased [Unknown]
  - Cellulitis [Unknown]
  - Myelodysplastic syndrome [Unknown]
